FAERS Safety Report 9254365 (Version 1)
Quarter: 2013Q2

REPORT INFORMATION
  Report Type: Spontaneous
  Country: BR (occurrence: BR)
  Receive Date: 20130425
  Receipt Date: 20130425
  Transmission Date: 20140414
  Serious: Yes (Other)
  Sender: FDA-Public Use
  Company Number: BR-SANOFI-AVENTIS-2013SA042340

PATIENT
  Age: 63 Year
  Sex: Female

DRUGS (12)
  1. FLUOROURACIL [Suspect]
     Indication: COLON CANCER METASTATIC
     Dosage: BOLUS DOSE
     Route: 065
  2. FLUOROURACIL [Suspect]
     Indication: COLON CANCER METASTATIC
     Dosage: BOLUS DOSE
     Route: 065
  3. FLUOROURACIL [Suspect]
     Indication: COLON CANCER METASTATIC
     Route: 065
  4. OXALIPLATIN [Suspect]
     Indication: COLON CANCER METASTATIC
     Route: 065
  5. OXALIPLATIN [Suspect]
     Indication: COLON CANCER METASTATIC
     Route: 065
  6. OXALIPLATIN [Suspect]
     Indication: COLON CANCER METASTATIC
     Route: 065
  7. LEUCOVORIN [Suspect]
     Indication: COLON CANCER METASTATIC
     Dosage: BOLUS DOSE
     Route: 065
  8. LEUCOVORIN [Suspect]
     Indication: COLON CANCER METASTATIC
     Route: 065
  9. LEUCOVORIN [Suspect]
     Indication: COLON CANCER METASTATIC
     Dosage: BOLUS DOSE
     Route: 065
  10. CETUXIMAB [Suspect]
     Indication: COLON CANCER METASTATIC
     Route: 065
  11. BEVACIZUMAB [Concomitant]
     Indication: COLON CANCER METASTATIC
  12. IRINOTECAN [Concomitant]
     Indication: COLON CANCER METASTATIC

REACTIONS (7)
  - Hydronephrosis [Unknown]
  - Splenomegaly [Unknown]
  - Neutropenia [Unknown]
  - Nausea [Unknown]
  - Vomiting [Unknown]
  - Stomatitis [Unknown]
  - Diarrhoea [Unknown]
